FAERS Safety Report 9394785 (Version 1)
Quarter: 2013Q3

REPORT INFORMATION
  Report Type: Spontaneous
  Country: JP (occurrence: JP)
  Receive Date: 20130711
  Receipt Date: 20130711
  Transmission Date: 20140515
  Serious: Yes (Other)
  Sender: FDA-Public Use
  Company Number: PHHY2013JP073549

PATIENT
  Age: 25 Year
  Sex: Male
  Weight: 53 kg

DRUGS (1)
  1. SANDIMMUN [Suspect]
     Indication: COLITIS ULCERATIVE
     Dosage: 150 MG
     Route: 042
     Dates: start: 20130704, end: 20130704

REACTIONS (2)
  - Intentional drug misuse [Unknown]
  - Incorrect drug administration rate [Unknown]
